FAERS Safety Report 9714586 (Version 1)
Quarter: 2013Q4

REPORT INFORMATION
  Report Type: Spontaneous
  Country: FR (occurrence: FR)
  Receive Date: 20131126
  Receipt Date: 20131126
  Transmission Date: 20140711
  Serious: Yes (Hospitalization)
  Sender: FDA-Public Use
  Company Number: FR-ALLERGAN-1318455US

PATIENT
  Age: 49 Year
  Sex: Female

DRUGS (6)
  1. COMBIGAN [Suspect]
     Indication: OPEN ANGLE GLAUCOMA
     Dosage: UNK
     Dates: start: 20131002, end: 20131021
  2. PLAQUENIL [Suspect]
     Indication: CUTANEOUS LUPUS ERYTHEMATOSUS
     Dosage: UNK
     Dates: start: 20131002, end: 20131021
  3. TRAVATAN [Suspect]
     Indication: OPEN ANGLE GLAUCOMA
     Dosage: UNK
     Dates: start: 20131002, end: 20131021
  4. DIAMOX [Suspect]
     Indication: OPEN ANGLE GLAUCOMA
     Dosage: UNK
     Dates: start: 20131002, end: 20131021
  5. INEXIUM [Suspect]
     Indication: ABDOMINAL PAIN UPPER
     Dosage: UNK
     Dates: start: 20131018
  6. PARACETAMOL [Concomitant]
     Indication: PRODUCT USED FOR UNKNOWN INDICATION
     Dosage: 1 G, THREE TIMES DAILY ON DEMAND THERAPY

REACTIONS (1)
  - Acute generalised exanthematous pustulosis [Recovering/Resolving]
